FAERS Safety Report 7114458-0 (Version None)
Quarter: 2010Q4

REPORT INFORMATION
  Report Type: 
  Country: None (occurrence: None)
  Receive Date: 20101119
  Receipt Date: 20101105
  Transmission Date: 20110411
  Serious: Yes (Hospitalization, Other)
  Sender: FDA-Public Use
  Company Number: US-ELI_LILLY_AND_COMPANY-US201011002155

PATIENT
  Sex: Male

DRUGS (7)
  1. ZYPREXA [Suspect]
     Indication: SCHIZOPHRENIA, PARANOID TYPE
     Dosage: 10 MG, DAILY (1/D)
     Dates: start: 20070101
  2. ZYPREXA [Suspect]
     Dosage: 20 MG, DAILY (1/D)
  3. ZYPREXA [Suspect]
     Dosage: 20 MG, 2/D
     Dates: start: 20080101
  4. ZYPREXA ZYDIS [Suspect]
     Indication: SCHIZOPHRENIA, PARANOID TYPE
     Dosage: 20 MG, DAILY (1/D)
     Dates: start: 20100201
  5. TRILEPTAL [Concomitant]
  6. NEURONTIN [Concomitant]
  7. ANTIHYPERTENSIVES [Concomitant]
     Indication: HYPERTENSION

REACTIONS (6)
  - AGGRESSION [None]
  - BLOOD GLUCOSE INCREASED [None]
  - COMA [None]
  - DRUG DOSE OMISSION [None]
  - HOSPITALISATION [None]
  - OVERDOSE [None]
